FAERS Safety Report 8891334 (Version 1)
Quarter: 2012Q4

REPORT INFORMATION
  Report Type: Spontaneous
  Country: US (occurrence: None)
  Receive Date: 20121105
  Receipt Date: 20121105
  Transmission Date: 20130627
  Serious: Yes (Disabling)
  Sender: FDA-Public Use
  Company Number: None

PATIENT
  Age: 55 Year
  Sex: Female
  Weight: 85.73 kg

DRUGS (1)
  1. BOTOX [Suspect]
     Indication: MIGRAINE
     Dates: start: 20120822

REACTIONS (2)
  - Contusion [None]
  - Eyelid ptosis [None]
